FAERS Safety Report 18125438 (Version 2)
Quarter: 2021Q1

REPORT INFORMATION
  Report Type: Spontaneous
  Country: US (occurrence: US)
  Receive Date: 20200807
  Receipt Date: 20210331
  Transmission Date: 20210419
  Serious: Yes (Other)
  Sender: FDA-Public Use
  Company Number: US-PURDUE-USA-2020-0159851

PATIENT
  Sex: Female

DRUGS (2)
  1. OXYCODONE HYDROCHLORIDE (SIMILAR TO NDA 22?272) [Suspect]
     Active Substance: OXYCODONE HYDROCHLORIDE
     Dosage: 30 MG, 6 TIMES A DAY
     Dates: end: 201809
  2. OXYCODONE HYDROCHLORIDE (SIMILAR TO NDA 22?272) [Suspect]
     Active Substance: OXYCODONE HYDROCHLORIDE
     Indication: PAIN
     Dosage: 5 MG, 6 TIMES A DAY
     Dates: start: 2005

REACTIONS (10)
  - Major depression [Unknown]
  - Personality change [Unknown]
  - Frustration tolerance decreased [Unknown]
  - Drug dependence [Unknown]
  - Depressed level of consciousness [Unknown]
  - Mental disorder [Unknown]
  - Dysarthria [Unknown]
  - Memory impairment [Unknown]
  - Product prescribing issue [Unknown]
  - Anger [Unknown]

NARRATIVE: CASE EVENT DATE: 201808
